APPROVED DRUG PRODUCT: ARSENIC TRIOXIDE
Active Ingredient: ARSENIC TRIOXIDE
Strength: 2MG/ML
Dosage Form/Route: INJECTABLE;INJECTION
Application: A209315 | Product #002
Applicant: NOVAST LABORATORIES LTD
Approved: Jan 14, 2021 | RLD: No | RS: No | Type: DISCN